FAERS Safety Report 19200262 (Version 4)
Quarter: 2021Q3

REPORT INFORMATION
  Report Type: Report from Study
  Country: US (occurrence: US)
  Receive Date: 20210430
  Receipt Date: 20210729
  Transmission Date: 20211014
  Serious: No
  Sender: FDA-Public Use
  Company Number: US-BIOVITRUM-2021US3823

PATIENT
  Sex: Female

DRUGS (2)
  1. KINERET [Suspect]
     Active Substance: ANAKINRA
     Dosage: /0.67ML
     Route: 058
     Dates: start: 20190428, end: 20210723
  2. KINERET [Suspect]
     Active Substance: ANAKINRA
     Indication: RHEUMATOID ARTHRITIS
     Route: 058
     Dates: start: 201903

REACTIONS (4)
  - Onychomycosis [Unknown]
  - Drug ineffective [Unknown]
  - Product dose omission issue [Unknown]
  - Memory impairment [Unknown]
